FAERS Safety Report 9406331 (Version 2)
Quarter: 2013Q3

REPORT INFORMATION
  Report Type: Spontaneous
  Country: US (occurrence: US)
  Receive Date: 20130717
  Receipt Date: 20130812
  Transmission Date: 20140515
  Serious: Yes (Hospitalization)
  Sender: FDA-Public Use
  Company Number: US-PFIZER INC-2013209539

PATIENT
  Age: 56 Year
  Sex: Male
  Weight: 100.23 kg

DRUGS (5)
  1. LIPITOR [Suspect]
     Indication: MYOCARDIAL INFARCTION
     Dosage: 40 MG, 1X/DAY
     Route: 048
     Dates: start: 200802
  2. CELEXA [Concomitant]
     Dosage: UNK
  3. LORTAB [Concomitant]
     Dosage: UNK
  4. COUMADINE [Concomitant]
     Dosage: 2.5 MG, 1X/DAY
  5. ALLOPURINOL [Concomitant]
     Dosage: UNK

REACTIONS (1)
  - Cerebrovascular accident [Unknown]
